FAERS Safety Report 6936656-9 (Version None)
Quarter: 2010Q3

REPORT INFORMATION
  Report Type: 
  Country: None (occurrence: None)
  Receive Date: 20100823
  Receipt Date: 20100811
  Transmission Date: 20110219
  Serious: Yes (Hospitalization, Other)
  Sender: FDA-Public Use
  Company Number: JP-JNJFOC-20070506448

PATIENT
  Sex: Male
  Weight: 53 kg

DRUGS (22)
  1. REMICADE [Suspect]
     Indication: RHEUMATOID ARTHRITIS
     Route: 042
  2. REMICADE [Suspect]
     Route: 042
  3. REMICADE [Suspect]
     Route: 042
  4. METHOTREXATE [Suspect]
     Indication: RHEUMATOID ARTHRITIS
     Route: 048
  5. SALAZOSULFAPYRIDINE [Suspect]
     Indication: RHEUMATOID ARTHRITIS
  6. PREDNISOLONE [Suspect]
     Indication: RHEUMATOID ARTHRITIS
     Route: 048
  7. PREDNISOLONE [Suspect]
     Route: 048
  8. PREDNISOLONE [Suspect]
     Route: 048
  9. RHEUMATREX [Concomitant]
     Indication: RHEUMATOID ARTHRITIS
     Route: 048
  10. RHEUMATREX [Concomitant]
     Route: 048
  11. ANTIHISTAMINES [Concomitant]
     Indication: PROPHYLAXIS
  12. LOXONIN [Concomitant]
     Indication: RHEUMATOID ARTHRITIS
     Dosage: DAILY DOSE: 3 TABS
     Route: 048
  13. MARZULENE-S [Concomitant]
     Indication: GASTRIC ULCER
     Route: 048
  14. GASTER [Concomitant]
     Indication: GASTRIC ULCER
     Route: 048
  15. NORVASC [Concomitant]
     Indication: HYPERTENSION
     Route: 048
  16. THYRADIN S [Concomitant]
     Indication: HYPOTHYROIDISM
     Dosage: DAILY DOSE: 150 RG
     Route: 048
  17. FLIVAS [Concomitant]
     Indication: BENIGN PROSTATIC HYPERPLASIA
     Route: 048
  18. AZULFIDINE [Concomitant]
     Indication: RHEUMATOID ARTHRITIS
     Route: 048
  19. FOLIAMIN [Concomitant]
     Route: 048
  20. ISCOTIN [Concomitant]
     Indication: PULMONARY TUBERCULOSIS
     Route: 048
  21. ISCOTIN [Concomitant]
     Indication: ANTIBIOTIC PROPHYLAXIS
     Route: 048
  22. ADRENAL HORMONE PREPARATIONS [Concomitant]
     Indication: RHEUMATOID ARTHRITIS

REACTIONS (5)
  - DIFFUSE LARGE B-CELL LYMPHOMA [None]
  - DISSEMINATED TUBERCULOSIS [None]
  - EPSTEIN-BARR VIRUS INFECTION [None]
  - PULMONARY TUBERCULOSIS [None]
  - TUBERCULOSIS [None]
